FAERS Safety Report 15556297 (Version 4)
Quarter: 2018Q4

REPORT INFORMATION
  Report Type: Spontaneous
  Country: UG (occurrence: UG)
  Receive Date: 20181026
  Receipt Date: 20181214
  Transmission Date: 20190205
  Serious: Yes (Death, Life-Threatening, Other)
  Sender: FDA-Public Use
  Company Number: UG-PFIZER INC-2018438276

PATIENT
  Age: 45 Year
  Sex: Male

DRUGS (7)
  1. TENOFOVIR [Suspect]
     Active Substance: TENOFOVIR
     Indication: HIV INFECTION
     Dosage: UNK
  2. EFAVIRENZ. [Suspect]
     Active Substance: EFAVIRENZ
     Indication: ANTIRETROVIRAL THERAPY
  3. LAMIVUDINE. [Suspect]
     Active Substance: LAMIVUDINE
     Indication: ANTIRETROVIRAL THERAPY
  4. EFAVIRENZ. [Suspect]
     Active Substance: EFAVIRENZ
     Indication: HIV INFECTION
     Dosage: UNK
  5. TENOFOVIR [Suspect]
     Active Substance: TENOFOVIR
     Indication: ANTIRETROVIRAL THERAPY
  6. FLUCONAZOLE. [Suspect]
     Active Substance: FLUCONAZOLE
     Indication: CRYPTOCOCCAL FUNGAEMIA
     Dosage: 800 MG, 1X/DAY
  7. LAMIVUDINE. [Suspect]
     Active Substance: LAMIVUDINE
     Indication: HIV INFECTION
     Dosage: UNK

REACTIONS (8)
  - Hypotension [Unknown]
  - Coma [Unknown]
  - Asthenia [Unknown]
  - Decreased appetite [Unknown]
  - Condition aggravated [Unknown]
  - General physical health deterioration [Fatal]
  - Generalised tonic-clonic seizure [Unknown]
  - Hypoxia [Unknown]
